FAERS Safety Report 6768235-0 (Version None)
Quarter: 2010Q2

REPORT INFORMATION
  Report Type: 
  Country: None (occurrence: None)
  Receive Date: 20100614
  Receipt Date: 20100324
  Transmission Date: 20101027
  Serious: Yes (Hospitalization, Other)
  Sender: FDA-Public Use
  Company Number: US-BAYER-200937456NA

PATIENT
  Age: 25 Year
  Sex: Female
  Weight: 91 kg

DRUGS (6)
  1. YASMIN [Suspect]
     Indication: DRUG USE FOR UNKNOWN INDICATION
     Route: 048
     Dates: start: 20010124, end: 20070301
  2. NSAID'S [Concomitant]
  3. ANTIBIOTICS [Concomitant]
  4. ZYRTEC [Concomitant]
     Dates: start: 20010101, end: 20080101
  5. NEXIUM [Concomitant]
     Dates: start: 20040101, end: 20080101
  6. METOCLOPRAMIDE [Concomitant]
     Dates: start: 20040101, end: 20090101

REACTIONS (4)
  - ABDOMINAL PAIN [None]
  - CHOLECYSTITIS CHRONIC [None]
  - NAUSEA [None]
  - REFLUX GASTRITIS [None]
